FAERS Safety Report 4429965-9 (Version None)
Quarter: 2004Q3

REPORT INFORMATION
  Report Type: 
  Country: None (occurrence: None)
  Receive Date: 20040817
  Receipt Date: 20040818
  Transmission Date: 20050211
  Serious: Yes (Death)
  Sender: FDA-Public Use
  Company Number: 2004UW16964

PATIENT
  Sex: Female

DRUGS (3)
  1. PRILOSEC [Suspect]
  2. PRILOSEC [Suspect]
     Dosage: INCREASED DOSE
     Dates: start: 19990401
  3. COUMADIN [Suspect]
     Dates: start: 19970101

REACTIONS (3)
  - CEREBROVASCULAR ACCIDENT [None]
  - DRUG INTERACTION [None]
  - HAEMORRHAGE INTRACRANIAL [None]
